FAERS Safety Report 7266201-2 (Version None)
Quarter: 2011Q1

REPORT INFORMATION
  Report Type: 
  Country: None (occurrence: None)
  Receive Date: 20110131
  Receipt Date: 20101102
  Transmission Date: 20110831
  Serious: No
  Sender: FDA-Public Use
  Company Number: US-ABBOTT-10P-163-0682910-00

PATIENT
  Sex: Male

DRUGS (1)
  1. LUPRON [Suspect]
     Indication: PRODUCT USED FOR UNKNOWN INDICATION

REACTIONS (6)
  - DISTURBANCE IN ATTENTION [None]
  - HOT FLUSH [None]
  - INSOMNIA [None]
  - FATIGUE [None]
  - ARTHRALGIA [None]
  - DEPRESSION [None]
